FAERS Safety Report 26210916 (Version 1)
Quarter: 2025Q4

REPORT INFORMATION
  Report Type: Spontaneous
  Country: EU (occurrence: EU)
  Receive Date: 20251230
  Receipt Date: 20251230
  Transmission Date: 20260118
  Serious: Yes (Hospitalization)
  Sender: NOVARTIS
  Company Number: None

PATIENT
  Age: 76 Year
  Sex: Male
  Weight: 74 kg

DRUGS (5)
  1. RYDAPT [Suspect]
     Active Substance: MIDOSTAURIN
     Indication: Acute myeloid leukaemia
     Dosage: 1 DOSAGE FORM, QD
     Route: 048
     Dates: start: 20250729, end: 20250804
  2. POSACONAZOLE [Suspect]
     Active Substance: POSACONAZOLE
     Indication: Prophylaxis
     Dosage: 1 DOSAGE FORM, QD
     Route: 048
     Dates: start: 20250811, end: 20250818
  3. VENETOCLAX [Suspect]
     Active Substance: VENETOCLAX
     Indication: Acute myeloid leukaemia
     Dosage: 1 DOSAGE FORM (CYCLICAL)
     Route: 042
     Dates: start: 20250718
  4. VIDAZA [Suspect]
     Active Substance: AZACITIDINE
     Indication: Acute myeloid leukaemia
     Dosage: 1 DOSAGE FORM (CYCLICAL)
     Route: 042
     Dates: start: 20250718
  5. AUGMENTIN [Suspect]
     Active Substance: AMOXICILLIN\CLAVULANATE POTASSIUM
     Indication: Lung disorder
     Dosage: 1 DOSAGE FORM, QD
     Route: 065
     Dates: start: 20250709, end: 20250713

REACTIONS (4)
  - Hepatic cytolysis [Recovered/Resolved]
  - Hepatic cytolysis [Recovered/Resolved]
  - Hepatic cytolysis [Recovering/Resolving]
  - Congenital aplasia [Recovered/Resolved]

NARRATIVE: CASE EVENT DATE: 20250713
